FAERS Safety Report 4333192-3 (Version None)
Quarter: 2004Q2

REPORT INFORMATION
  Report Type: 
  Country: None (occurrence: None)
  Receive Date: 20040402
  Receipt Date: 20040225
  Transmission Date: 20050107
  Serious: Yes (Other)
  Sender: FDA-Public Use
  Company Number: THQ2004A00310

PATIENT
  Age: 63 Year
  Sex: Female

DRUGS (5)
  1. LANSOPRAZOLE [Suspect]
     Indication: DYSPEPSIA
     Dosage: 15MG ONCE DAILY WHEN REQUIRED
     Dates: start: 20040213, end: 20040218
  2. ATENOLOL [Concomitant]
  3. BENDROFLUAZIDE [Concomitant]
  4. OMAGE-3 TRIGLYCERIDES [Concomitant]
  5. GAVISCON [Concomitant]

REACTIONS (3)
  - LETHARGY [None]
  - NAUSEA [None]
  - VISUAL DISTURBANCE [None]
